FAERS Safety Report 25359648 (Version 3)
Quarter: 2025Q3

REPORT INFORMATION
  Report Type: Report from Study
  Country: EU (occurrence: EU)
  Receive Date: 20250526
  Receipt Date: 20250908
  Transmission Date: 20251020
  Serious: Yes (Life-Threatening, Other)
  Sender: TAKEDA
  Company Number: EU-TAKEDA-2025TUS047212

PATIENT
  Age: 65 Year
  Sex: Female

DRUGS (27)
  1. PONATINIB [Suspect]
     Active Substance: PONATINIB
     Indication: Acute lymphocytic leukaemia recurrent
     Dosage: 45 MILLIGRAM, QD
     Dates: start: 202401
  2. PONATINIB [Suspect]
     Active Substance: PONATINIB
     Indication: B precursor type acute leukaemia
  3. IMATINIB [Suspect]
     Active Substance: IMATINIB
     Indication: B precursor type acute leukaemia
  4. IMATINIB [Suspect]
     Active Substance: IMATINIB
  5. IMATINIB [Suspect]
     Active Substance: IMATINIB
  6. IMATINIB [Suspect]
     Active Substance: IMATINIB
  7. IMATINIB [Suspect]
     Active Substance: IMATINIB
  8. IMATINIB [Suspect]
     Active Substance: IMATINIB
     Dosage: UNK UNK, QD
     Dates: start: 202107
  9. DASATINIB [Suspect]
     Active Substance: DASATINIB
     Indication: B precursor type acute leukaemia
     Dosage: 100 MILLIGRAM, QD
     Dates: start: 2023
  10. DASATINIB [Suspect]
     Active Substance: DASATINIB
     Dosage: 140 MILLIGRAM, QD
     Dates: start: 202307, end: 2023
  11. DEXAMETHASONE [Concomitant]
     Active Substance: DEXAMETHASONE
     Indication: B precursor type acute leukaemia
  12. DEXAMETHASONE [Concomitant]
     Active Substance: DEXAMETHASONE
     Dosage: 40 MILLIGRAM, QD
     Dates: start: 202307
  13. VINCRISTINE [Concomitant]
     Active Substance: VINCRISTINE
     Indication: B precursor type acute leukaemia
  14. METHOTREXATE [Concomitant]
     Active Substance: METHOTREXATE
     Indication: B precursor type acute leukaemia
  15. METHOTREXATE [Concomitant]
     Active Substance: METHOTREXATE
  16. CYTARABINE [Concomitant]
     Active Substance: CYTARABINE
     Indication: B precursor type acute leukaemia
  17. CYTARABINE [Concomitant]
     Active Substance: CYTARABINE
  18. INOTUZUMAB OZOGAMICIN [Concomitant]
     Active Substance: INOTUZUMAB OZOGAMICIN
     Indication: B precursor type acute leukaemia
  19. INOTUZUMAB OZOGAMICIN [Concomitant]
     Active Substance: INOTUZUMAB OZOGAMICIN
  20. INOTUZUMAB OZOGAMICIN [Concomitant]
     Active Substance: INOTUZUMAB OZOGAMICIN
  21. RITUXIMAB [Concomitant]
     Active Substance: RITUXIMAB
     Indication: B precursor type acute leukaemia
  22. RITUXIMAB [Concomitant]
     Active Substance: RITUXIMAB
  23. RITUXIMAB [Concomitant]
     Active Substance: RITUXIMAB
  24. RITUXIMAB [Concomitant]
     Active Substance: RITUXIMAB
  25. RITUXIMAB [Concomitant]
     Active Substance: RITUXIMAB
  26. PEG/L-ASPARAGINASE [Concomitant]
     Active Substance: PEGASPARGASE
     Indication: B precursor type acute leukaemia
  27. PEG/L-ASPARAGINASE [Concomitant]
     Active Substance: PEGASPARGASE

REACTIONS (4)
  - Drug resistance [Unknown]
  - Haematotoxicity [Unknown]
  - Gastrointestinal toxicity [Unknown]
  - Disease progression [Unknown]
